FAERS Safety Report 8412701-9 (Version None)
Quarter: 2012Q2

REPORT INFORMATION
  Report Type: 
  Country: None (occurrence: None)
  Receive Date: 20120531
  Receipt Date: 20120531
  Transmission Date: 20120825
  Serious: No
  Sender: FDA-Public Use
  Company Number: None

PATIENT
  Sex: Female
  Weight: 82 kg

DRUGS (1)
  1. DEXAMETHASONE [Suspect]
     Dosage: 150 MG

REACTIONS (3)
  - CHEST PAIN [None]
  - OSTEONECROSIS [None]
  - CONDITION AGGRAVATED [None]
